FAERS Safety Report 15192543 (Version 2)
Quarter: 2018Q3

REPORT INFORMATION
  Report Type: Spontaneous
  Country: BR (occurrence: BR)
  Receive Date: 20180725
  Receipt Date: 20180927
  Transmission Date: 20181010
  Serious: Yes (Death, Hospitalization, Other)
  Sender: FDA-Public Use
  Company Number: BR-AMGEN-BRASP2018100559

PATIENT
  Age: 85 Year
  Sex: Female
  Weight: 46 kg

DRUGS (14)
  1. TAZOCIN [Concomitant]
     Active Substance: PIPERACILLIN SODIUM\TAZOBACTAM SODIUM
     Indication: MUCOSAL INFLAMMATION
     Dosage: UNK
     Dates: start: 20180216
  2. OMEPRAZOLE. [Concomitant]
     Active Substance: OMEPRAZOLE
     Dosage: 20 MG, QD (1 CP/DAY)
  3. FAULDVINCRI [Concomitant]
     Active Substance: VINCRISTINE SULFATE
     Indication: NON-HODGKIN^S LYMPHOMA
     Dosage: 1 MG, UNK
     Route: 042
     Dates: start: 20180205
  4. MABTHERA [Concomitant]
     Active Substance: RITUXIMAB
     Indication: NON-HODGKIN^S LYMPHOMA
     Dosage: UNK (DOSE?532,876)
     Route: 042
     Dates: start: 20180205
  5. LEVITE [Concomitant]
     Dosage: 88 MUG, QD (1 CP/DAY)
  6. RITMONORM [Concomitant]
     Active Substance: PROPAFENONE HYDROCHLORIDE
     Dosage: 300 MG, QD (1/2 CP/DAY)
  7. PROLOPA [Concomitant]
     Active Substance: BENSERAZIDE\LEVODOPA
     Dosage: (2 CP / D)
  8. DOMPERIDONE [Concomitant]
     Active Substance: DOMPERIDONE
     Dosage: 10 MG, (3 CP/DAY)
  9. ELIQUIS [Concomitant]
     Active Substance: APIXABAN
     Dosage: 2.5 MG, QD (2 CP/DAY)
  10. GENUXAL [Concomitant]
     Active Substance: CYCLOPHOSPHAMIDE
     Indication: NON-HODGKIN^S LYMPHOMA
     Dosage: 568.4 MG, UNK
     Route: 042
     Dates: start: 20180205
  11. VENLAFAXINE [Concomitant]
     Active Substance: VENLAFAXINE HYDROCHLORIDE
     Dosage: 75 MG, QD (1 CP/DAY)
  12. DEXAMETHASONE. [Concomitant]
     Active Substance: DEXAMETHASONE
     Dosage: 4 MG, QD (2 CP/DAY)
  13. ECALTA [Concomitant]
     Active Substance: ANIDULAFUNGIN
     Indication: MUCOSAL INFLAMMATION
     Dosage: UNK
     Dates: start: 20180216
  14. GRANULOKINE [Suspect]
     Active Substance: FILGRASTIM
     Indication: FEBRILE NEUTROPENIA
     Dosage: UNK
     Route: 065
     Dates: start: 20180216

REACTIONS (2)
  - General physical health deterioration [Unknown]
  - Acute respiratory failure [Fatal]

NARRATIVE: CASE EVENT DATE: 201802
